FAERS Safety Report 6210938 (Version 7)
Quarter: 2017Q2

REPORT INFORMATION
  Report Type: Spontaneous
  Country: NO (occurrence: NO)
  Receive Date: 20070109
  Receipt Date: 20170619
  Transmission Date: 20170830
  Serious: Yes (Death, Congenital Anomaly)
  Sender: FDA-Public Use
  Company Number: NO-ASTRAZENECA-2007SE00031

PATIENT
  Age: 0 Day
  Sex: Male
  Weight: 2.1 kg

DRUGS (2)
  1. ATACAND [Suspect]
     Active Substance: CANDESARTAN CILEXETIL
     Route: 064
     Dates: end: 20061226
  2. NORMORIX MITE [Concomitant]
     Active Substance: AMILORIDE HYDROCHLORIDE\HYDROCHLOROTHIAZIDE
     Route: 064
     Dates: end: 20061226

REACTIONS (12)
  - Congenital central nervous system anomaly [Fatal]
  - Renal hypertrophy [Fatal]
  - Death neonatal [Fatal]
  - Pulmonary hypoplasia [Fatal]
  - Premature baby [Fatal]
  - Angiotensin converting enzyme inhibitor foetopathy [Fatal]
  - Deformity thorax [Fatal]
  - Renal dysplasia [Fatal]
  - Respiratory disorder neonatal [Fatal]
  - Small for dates baby [Fatal]
  - Skull malformation [Fatal]
  - Head deformity [Fatal]

NARRATIVE: CASE EVENT DATE: 20070102
